FAERS Safety Report 9036857 (Version 1)
Quarter: 2013Q1

REPORT INFORMATION
  Report Type: Report from Study
  Country: US (occurrence: US)
  Receive Date: 20130129
  Receipt Date: 20130129
  Transmission Date: 20140127
  Serious: No
  Sender: FDA-Public Use
  Company Number: US-ABBOTT-12P-163-0891838-00

PATIENT
  Age: 42 Year
  Sex: Male

DRUGS (3)
  1. HUMIRA 40 MG/0.8 ML PEN [Suspect]
     Indication: CROHN^S DISEASE
  2. FLUOXETINE [Concomitant]
     Indication: DEPRESSION
     Route: 048
  3. BUPROPION [Concomitant]
     Indication: DEPRESSION
     Route: 048

REACTIONS (1)
  - Epicondylitis [Not Recovered/Not Resolved]
